FAERS Safety Report 19993189 (Version 1)
Quarter: 2021Q4

REPORT INFORMATION
  Report Type: Spontaneous
  Country: GB (occurrence: GB)
  Receive Date: 20211026
  Receipt Date: 20211026
  Transmission Date: 20220303
  Serious: Yes (Hospitalization, Other)
  Sender: FDA-Public Use
  Company Number: None

PATIENT
  Age: 31 Year
  Sex: Female
  Weight: 64 kg

DRUGS (2)
  1. BOTULINUM TOXIN TYPE A [Suspect]
     Active Substance: BOTULINUM TOXIN TYPE A
     Indication: Skin cosmetic procedure
     Dosage: 125 IU
     Route: 051
     Dates: start: 20210707, end: 20210707
  2. UNSPECIFIED INGREDIENT [Concomitant]
     Active Substance: UNSPECIFIED INGREDIENT
     Dosage: TO TREAT LUMPS.

REACTIONS (5)
  - Skin induration [Not Recovered/Not Resolved]
  - Skin mass [Not Recovered/Not Resolved]
  - Cyst [Not Recovered/Not Resolved]
  - Abscess [Not Recovered/Not Resolved]
  - Cyst drainage [Unknown]

NARRATIVE: CASE EVENT DATE: 20210707
